FAERS Safety Report 25726939 (Version 1)
Quarter: 2025Q3

REPORT INFORMATION
  Report Type: Spontaneous
  Country: CN (occurrence: CN)
  Receive Date: 20250826
  Receipt Date: 20250826
  Transmission Date: 20251020
  Serious: Yes (Hospitalization)
  Sender: FRESENIUS KABI
  Company Number: CN-FreseniusKabi-FK202511667

PATIENT
  Age: 63 Year
  Sex: Female
  Weight: 55 kg

DRUGS (7)
  1. INTRALIPID [Suspect]
     Active Substance: EGG PHOSPHOLIPIDS\GLYCERIN\SOYBEAN OIL
     Indication: Nutritional supplementation
     Dosage: FOA- INJECTION
     Route: 041
     Dates: start: 20250818, end: 20250818
  2. DEXTROSE [Concomitant]
     Active Substance: DEXTROSE MONOHYDRATE
     Indication: Nutritional supplementation
  3. 10% sodium chloride injection [Concomitant]
     Indication: Nutritional supplementation
  4. 15% potassium chloride injection [Concomitant]
     Indication: Nutritional supplementation
     Dosage: FOA- INJECTION?ROA- IVGTT
  5. AMINO ACIDS, SOURCE UNSPECIFIED [Concomitant]
     Active Substance: AMINO ACIDS, SOURCE UNSPECIFIED
     Indication: Nutritional supplementation
     Dosage: FOA- INJECTION?ROA- IVGTT
  6. fat-soluble/water-soluble vitamins [Concomitant]
     Indication: Nutritional supplementation
     Dosage: FOA- INJECTION?ROA- IVGTT
  7. fat-soluble/water-soluble vitamins [Concomitant]
     Indication: Nutritional supplementation
     Dosage: FOA- INJECTION?ROA- IVGTT

REACTIONS (5)
  - Vomiting [Recovering/Resolving]
  - Blood pressure decreased [Recovering/Resolving]
  - Dizziness [Recovered/Resolved]
  - Nausea [Recovered/Resolved]
  - Hyperhidrosis [Recovering/Resolving]

NARRATIVE: CASE EVENT DATE: 20250818
